FAERS Safety Report 5271659-4 (Version None)
Quarter: 2007Q1

REPORT INFORMATION
  Report Type: 
  Country: None (occurrence: None)
  Receive Date: 20070316
  Receipt Date: 20070301
  Transmission Date: 20070707
  Serious: Yes (Hospitalization)
  Sender: FDA-Public Use
  Company Number: 2005BI008186

PATIENT
  Age: 52 Year
  Sex: Female
  Weight: 65.7716 kg

DRUGS (9)
  1. AVONEX [Suspect]
     Indication: MULTIPLE SCLEROSIS
     Dosage: 39 UG;QW;IM
     Route: 030
     Dates: start: 19990420, end: 20030801
  2. AVONEX [Suspect]
     Indication: MULTIPLE SCLEROSIS
     Dosage: 30 UG;QW; IM; IM
     Route: 030
     Dates: start: 20030801, end: 20040314
  3. IRON SUPPLEMENT [Concomitant]
  4. PAXIL [Concomitant]
  5. ZANAFLEX [Concomitant]
  6. RESTORIL [Concomitant]
  7. LIORESAL [Concomitant]
  8. DETROL LA [Concomitant]
  9. BACLOFEN [Concomitant]

REACTIONS (5)
  - EPISTAXIS [None]
  - IDIOPATHIC THROMBOCYTOPENIC PURPURA [None]
  - MENORRHAGIA [None]
  - PLATELET COUNT DECREASED [None]
  - URINARY TRACT INFECTION [None]
